FAERS Safety Report 8880874 (Version 1)
Quarter: 2012Q4

REPORT INFORMATION
  Report Type: 
  Country: DE (occurrence: DE)
  Receive Date: 20121101
  Receipt Date: 20121101
  Transmission Date: 20130627
  Serious: Yes (Hospitalization, Other)
  Sender: FDA-Public Use
  Company Number: DE-ELI_LILLY_AND_COMPANY-DE201210005855

PATIENT
  Age: 19 Year
  Sex: Male

DRUGS (3)
  1. STRATTERA [Suspect]
     Indication: ATTENTION DEFICIT/HYPERACTIVITY DISORDER
     Dosage: UNK
     Dates: start: 2006, end: 201110
  2. STRATTERA [Suspect]
     Dosage: 100 mg, unknown
     Route: 048
     Dates: start: 201110
  3. FLUVOXAMIN [Concomitant]
     Indication: TIC
     Dosage: 50 mg, qd

REACTIONS (3)
  - Compartment syndrome [Unknown]
  - Sports injury [Unknown]
  - Von Willebrand^s disease [Not Recovered/Not Resolved]
